FAERS Safety Report 25131318 (Version 2)
Quarter: 2025Q2

REPORT INFORMATION
  Report Type: Spontaneous
  Country: US (occurrence: US)
  Receive Date: 20250327
  Receipt Date: 20250501
  Transmission Date: 20250717
  Serious: Yes (Hospitalization, Other)
  Sender: INCYTE
  Company Number: US-EVENT-002176

PATIENT
  Age: 52 Year

DRUGS (2)
  1. OPZELURA [Suspect]
     Active Substance: RUXOLITINIB PHOSPHATE
     Indication: Dermatitis atopic
     Dosage: 1.5 PERCENT, BID (APPLY TO AFFECTED AREA(S) AS DIRECTED. FOLLOW WITH A CERAVE MOISTURIZING CREAM)
     Route: 065
  2. COSMETICS [Concomitant]
     Active Substance: COSMETICS
     Indication: Product used for unknown indication

REACTIONS (3)
  - Neck injury [Unknown]
  - Spinal disorder [Unknown]
  - Vertigo [Unknown]
